FAERS Safety Report 10205037 (Version 1)
Quarter: 2014Q2

REPORT INFORMATION
  Report Type: Spontaneous
  Country: US (occurrence: None)
  Receive Date: 20140527
  Receipt Date: 20140527
  Transmission Date: 20141212
  Serious: Yes (Hospitalization)
  Sender: FDA-Public Use
  Company Number: None

PATIENT
  Age: 23 Year
  Sex: Female

DRUGS (1)
  1. SULFAMETHOXAZOLE/TRIMETHOPRIM [Suspect]
     Indication: ABSCESS
     Dosage: UNKNOWN, UNKNOWN, PO
     Route: 048
     Dates: end: 20120513

REACTIONS (8)
  - Rash [None]
  - Pyrexia [None]
  - Nausea [None]
  - Vomiting [None]
  - Pain [None]
  - Stevens-Johnson syndrome [None]
  - Ocular hyperaemia [None]
  - Eye irritation [None]
